FAERS Safety Report 17815582 (Version 1)
Quarter: 2020Q2

REPORT INFORMATION
  Report Type: Spontaneous
  Country: US (occurrence: US)
  Receive Date: 20200521
  Receipt Date: 20200521
  Transmission Date: 20200714
  Serious: No
  Sender: FDA-Public Use
  Company Number: None

PATIENT
  Age: 70 Year
  Sex: Male
  Weight: 96.92 kg

DRUGS (1)
  1. GADOBUTROL (GADOBUTROL) [Suspect]
     Active Substance: GADOBUTROL
     Indication: MAGNETIC RESONANCE IMAGING
     Dates: start: 20180614, end: 20180614

REACTIONS (4)
  - Feeling abnormal [None]
  - Urticaria [None]
  - Pruritus [None]
  - Bone pain [None]

NARRATIVE: CASE EVENT DATE: 20180614
